FAERS Safety Report 9459724 (Version 1)
Quarter: 2013Q3

REPORT INFORMATION
  Report Type: Report from Study
  Country: MX (occurrence: MX)
  Receive Date: 20130815
  Receipt Date: 20130815
  Transmission Date: 20140515
  Serious: Yes (Death)
  Sender: FDA-Public Use
  Company Number: MX-ROCHE-1261950

PATIENT
  Age: 58 Year
  Sex: Male
  Weight: 48 kg

DRUGS (1)
  1. XELODA [Suspect]
     Indication: COLORECTAL CANCER METASTATIC
     Dosage: 2-0-2
     Route: 048
     Dates: start: 201212, end: 201302

REACTIONS (1)
  - Disease progression [Fatal]
